FAERS Safety Report 11574106 (Version 3)
Quarter: 2015Q4

REPORT INFORMATION
  Report Type: Report from Study
  Country: US (occurrence: US)
  Receive Date: 20150930
  Receipt Date: 20151021
  Transmission Date: 20160304
  Serious: No
  Sender: FDA-Public Use
  Company Number: US-AMGEN-USASP2015098001

PATIENT
  Sex: Female

DRUGS (1)
  1. ENBREL [Suspect]
     Active Substance: ETANERCEPT
     Indication: PRODUCT USED FOR UNKNOWN INDICATION
     Dosage: UNK UNK, QWK
     Route: 065

REACTIONS (7)
  - Overweight [Unknown]
  - Drug dose omission [Unknown]
  - Decreased appetite [Unknown]
  - Breast calcifications [Unknown]
  - Urinary tract infection [Recovered/Resolved]
  - Arthropathy [Unknown]
  - Urticaria [Unknown]
